FAERS Safety Report 9433395 (Version 2)
Quarter: 2014Q1

REPORT INFORMATION
  Report Type: Spontaneous
  Country: US (occurrence: US)
  Receive Date: 20130731
  Receipt Date: 20140103
  Transmission Date: 20141002
  Serious: Yes (Hospitalization)
  Sender: FDA-Public Use
  Company Number: US-B.I. PHARMACEUTICALS,INC./RIDGEFIELD-2013-BI-22450BP

PATIENT
  Age: 64 Year
  Sex: Male
  Weight: 79.38 kg

DRUGS (16)
  1. PRADAXA [Suspect]
     Dosage: 300 MG
     Dates: start: 20120118, end: 20120924
  2. NORVASC [Concomitant]
     Dosage: 10 MG
     Route: 048
  3. COZAAR [Concomitant]
     Dosage: 50 MG
     Route: 048
  4. VICTOZA [Concomitant]
     Dosage: 1.8 MG
     Route: 058
  5. LIDEX [Concomitant]
     Route: 061
  6. CATAPRES [Concomitant]
     Dosage: 0.9 MG
     Route: 048
  7. MAGNESIUM CHLORIDE [Concomitant]
     Dosage: 64 MG
     Route: 048
  8. LASIX [Concomitant]
     Dosage: 40 MG
     Route: 048
  9. CHROMIUM PICOLINATE [Concomitant]
     Route: 048
  10. MULTIVITAMIN [Concomitant]
     Route: 048
  11. CALCIUM 600 + D [Concomitant]
     Route: 048
  12. VITAMIN C [Concomitant]
     Dosage: 500 MG
     Route: 048
  13. LANOXIN [Concomitant]
     Dosage: 0.25 MG
     Route: 048
  14. ZOCOR [Concomitant]
     Dosage: 20 MG
     Route: 048
  15. ZYRTEC [Concomitant]
     Dosage: 10 MG
  16. METOPROLOL SUCCINATE [Concomitant]
     Route: 048

REACTIONS (6)
  - Gastrointestinal haemorrhage [Unknown]
  - Haemorrhagic anaemia [Unknown]
  - Haemoptysis [Unknown]
  - Epistaxis [Unknown]
  - International normalised ratio abnormal [Unknown]
  - Renal function test abnormal [Unknown]
